FAERS Safety Report 9989175 (Version 1)
Quarter: 2014Q1

REPORT INFORMATION
  Report Type: Spontaneous
  Country: GB (occurrence: GB)
  Receive Date: 20140310
  Receipt Date: 20140310
  Transmission Date: 20141002
  Serious: Yes (Death, Other)
  Sender: FDA-Public Use
  Company Number: 2014SP001095

PATIENT
  Age: 65 Year
  Sex: Male

DRUGS (8)
  1. CISPLATIN [Suspect]
     Indication: CASTLEMAN^S DISEASE
  2. CYTARABINE [Suspect]
     Indication: CASTLEMAN^S DISEASE
  3. DEXAMETHASONE [Suspect]
     Indication: CASTLEMAN^S DISEASE
  4. DOXORUBICIN [Suspect]
     Indication: CASTLEMAN^S DISEASE
     Route: 042
  5. PREDNISONE [Suspect]
     Indication: CASTLEMAN^S DISEASE
  6. CYCLOPHOSPHAMIDE [Suspect]
     Indication: CASTLEMAN^S DISEASE
  7. RITUXIMAB [Suspect]
     Indication: CASTLEMAN^S DISEASE
  8. VINCRISTINE [Suspect]
     Indication: CASTLEMAN^S DISEASE

REACTIONS (3)
  - Castleman^s disease [Fatal]
  - Off label use [Unknown]
  - Disease progression [Fatal]
